FAERS Safety Report 5753934-X (Version None)
Quarter: 2008Q2

REPORT INFORMATION
  Report Type: 
  Country: None (occurrence: None)
  Receive Date: 20080527
  Receipt Date: 20080527
  Transmission Date: 20081010
  Serious: Yes (Other)
  Sender: FDA-Public Use
  Company Number: None

PATIENT
  Age: 54 Year
  Sex: Female
  Weight: 138.3471 kg

DRUGS (1)
  1. CYMBALTA [Suspect]
     Indication: FIBROMYALGIA
     Dosage: 20MG          3 TIMES A DAY      PO
     Route: 048
     Dates: start: 20060101, end: 20080505

REACTIONS (16)
  - ABNORMAL BEHAVIOUR [None]
  - AGGRESSION [None]
  - AGITATION [None]
  - CRYING [None]
  - DEPRESSION [None]
  - DIZZINESS [None]
  - EMOTIONAL DISORDER [None]
  - FAMILY STRESS [None]
  - HEADACHE [None]
  - HYPOAESTHESIA [None]
  - MARITAL PROBLEM [None]
  - NERVOUSNESS [None]
  - PAIN [None]
  - PARAESTHESIA [None]
  - THINKING ABNORMAL [None]
  - VISION BLURRED [None]
